FAERS Safety Report 12423773 (Version 1)
Quarter: 2016Q2

REPORT INFORMATION
  Report Type: Spontaneous
  Country: US (occurrence: US)
  Receive Date: 20160601
  Receipt Date: 20160601
  Transmission Date: 20160815
  Serious: No
  Sender: FDA-Public Use
  Company Number: US-NOVEN PHARMACEUTICALS, INC.-US2015000928

PATIENT
  Age: 9 Year
  Sex: Male

DRUGS (1)
  1. DAYTRANA [Suspect]
     Active Substance: METHYLPHENIDATE
     Indication: ATTENTION DEFICIT/HYPERACTIVITY DISORDER
     Dosage: 10 MG FOR 9 HOURS
     Route: 062
     Dates: start: 201509

REACTIONS (3)
  - Chest pain [Not Recovered/Not Resolved]
  - Muscle twitching [Not Recovered/Not Resolved]
  - Tic [Not Recovered/Not Resolved]

NARRATIVE: CASE EVENT DATE: 201510
